FAERS Safety Report 9023985 (Version 1)
Quarter: 2013Q1

REPORT INFORMATION
  Report Type: Spontaneous
  Country: US (occurrence: US)
  Receive Date: 20130122
  Receipt Date: 20130122
  Transmission Date: 20140127
  Serious: Yes (Other)
  Sender: FDA-Public Use
  Company Number: US-009507513-1301USA002696

PATIENT
  Sex: Male

DRUGS (5)
  1. DEXAMETHASONE [Suspect]
     Indication: PRODUCT USED FOR UNKNOWN INDICATION
     Dosage: UNK
     Route: 048
  2. REVLIMID [Suspect]
     Indication: PLASMA CELL MYELOMA
     Dosage: 25 MG, 14 IN 21 D
     Route: 048
     Dates: start: 20121102
  3. REVLIMID [Suspect]
     Dosage: 25 MG, 14 IN 21 D
     Route: 048
     Dates: start: 20121102
  4. VELCADE [Suspect]
     Indication: PRODUCT USED FOR UNKNOWN INDICATION
     Route: 065
  5. ZOMETA [Suspect]
     Indication: PRODUCT USED FOR UNKNOWN INDICATION
     Route: 065

REACTIONS (6)
  - Mood altered [Unknown]
  - Insomnia [Unknown]
  - Drug dose omission [Unknown]
  - Influenza like illness [Unknown]
  - Local swelling [Unknown]
  - Neuropathy peripheral [Unknown]
